FAERS Safety Report 10452059 (Version 1)
Quarter: 2014Q3

REPORT INFORMATION
  Report Type: Spontaneous
  Country: US (occurrence: None)
  Receive Date: 20140912
  Receipt Date: 20140912
  Transmission Date: 20150326
  Serious: No
  Sender: FDA-Public Use
  Company Number: None

PATIENT
  Age: 66 Year
  Sex: Female
  Weight: 69.3 kg

DRUGS (1)
  1. CYTARABINE. [Suspect]
     Active Substance: CYTARABINE
     Dates: start: 20140707, end: 20140710

REACTIONS (4)
  - Mental status changes [None]
  - Blood urea increased [None]
  - Respiratory failure [None]
  - General physical health deterioration [None]

NARRATIVE: CASE EVENT DATE: 20140716
